FAERS Safety Report 5581619-1 (Version None)
Quarter: 2008Q1

REPORT INFORMATION
  Report Type: 
  Country: None (occurrence: None)
  Receive Date: 20080102
  Receipt Date: 20080102
  Transmission Date: 20080703
  Serious: Yes (Life-Threatening, Hospitalization)
  Sender: FDA-Public Use
  Company Number: None

PATIENT
  Age: 63 Year
  Sex: Male
  Weight: 96.6 kg

DRUGS (3)
  1. WARFARIN 5MG DAILY ORALLY [Suspect]
     Indication: THROMBOSIS PROPHYLAXIS
     Dosage: 5MG DAILY ORALLY
     Route: 048
  2. ENOXAPARIN 100 MG TWICE DAILY SUBCUTANEOUSLY [Suspect]
     Indication: THROMBOSIS PROPHYLAXIS
     Dosage: 100 MG TWICE DAILY SUBCUTANEOUSLY
     Route: 058
  3. CLOPIDOGREL [Suspect]
     Dosage: 75 MG DAILY ORALLY
     Route: 048

REACTIONS (12)
  - ABDOMINAL PAIN [None]
  - ABDOMINAL WALL HAEMATOMA [None]
  - ANORECTAL DISORDER [None]
  - BLOOD CREATININE INCREASED [None]
  - HAEMATOCRIT DECREASED [None]
  - HAEMOGLOBIN DECREASED [None]
  - HYPOTENSION [None]
  - INTERNATIONAL NORMALISED RATIO DECREASED [None]
  - LEUKOCYTOSIS [None]
  - MUSCLE HAEMORRHAGE [None]
  - RED BLOOD CELL COUNT DECREASED [None]
  - SHOCK [None]
